FAERS Safety Report 15817695 (Version 1)
Quarter: 2019Q1

REPORT INFORMATION
  Report Type: Spontaneous
  Country: US (occurrence: US)
  Receive Date: 20190113
  Receipt Date: 20190113
  Transmission Date: 20190417
  Serious: No
  Sender: FDA-Public Use
  Company Number: US-COOPERSURGICAL, INC.-US-2018CPS017609

PATIENT
  Age: 28 Year
  Sex: Female
  Weight: 105 kg

DRUGS (2)
  1. SIMVASTATIN. [Concomitant]
     Active Substance: SIMVASTATIN
  2. PARAGARD T 380A [Suspect]
     Active Substance: COPPER
     Indication: CONTRACEPTION
     Dates: start: 20101227, end: 20171115

REACTIONS (7)
  - Vaginal odour [Recovered/Resolved]
  - Dysmenorrhoea [Recovered/Resolved]
  - Pain [Unknown]
  - Embedded device [Not Recovered/Not Resolved]
  - Fungal infection [Recovered/Resolved]
  - Device breakage [Not Recovered/Not Resolved]
  - Vaginal discharge [Recovered/Resolved]

NARRATIVE: CASE EVENT DATE: 20171115
